FAERS Safety Report 23911551 (Version 4)
Quarter: 2025Q1

REPORT INFORMATION
  Report Type: Spontaneous
  Country: US (occurrence: US)
  Receive Date: 20240528
  Receipt Date: 20250211
  Transmission Date: 20250408
  Serious: Yes (Other)
  Sender: SANOFI AVENTIS
  Company Number: US-SA-SAC20240523000569

PATIENT
  Age: 53 Year
  Sex: Male

DRUGS (2)
  1. DUPIXENT [Suspect]
     Active Substance: DUPILUMAB
     Indication: Dermatitis atopic
     Dosage: 300 MG, QOW
     Route: 058
     Dates: start: 20240101, end: 20240901
  2. REPATHA [Concomitant]
     Active Substance: EVOLOCUMAB
     Dates: start: 202401, end: 202409

REACTIONS (9)
  - Neuropathy peripheral [Recovered/Resolved]
  - Neuralgia [Unknown]
  - Condition aggravated [Unknown]
  - Limb discomfort [Unknown]
  - Muscular weakness [Unknown]
  - Gait disturbance [Unknown]
  - Pain [Unknown]
  - Burning sensation [Unknown]
  - Arthralgia [Unknown]

NARRATIVE: CASE EVENT DATE: 20240121
